FAERS Safety Report 13611361 (Version 1)
Quarter: 2017Q2

REPORT INFORMATION
  Report Type: Spontaneous
  Country: US (occurrence: US)
  Receive Date: 20170203
  Receipt Date: 20170203
  Transmission Date: 20170830
  Serious: No
  Sender: FDA-Public Use
  Company Number: US-KEDRION-2017-11

PATIENT
  Age: 29 Year
  Sex: Female

DRUGS (1)
  1. RHOGAM [Suspect]
     Active Substance: HUMAN RHO(D) IMMUNE GLOBULIN
     Indication: PROPHYLAXIS AGAINST RH ISOIMMUNISATION
     Dates: start: 201312, end: 201312

REACTIONS (6)
  - Confusional state [Not Recovered/Not Resolved]
  - Tremor [Recovered/Resolved]
  - Weight decreased [Recovered/Resolved]
  - Immune system disorder [Not Recovered/Not Resolved]
  - Vision blurred [Not Recovered/Not Resolved]
  - Chronic fatigue syndrome [Not Recovered/Not Resolved]

NARRATIVE: CASE EVENT DATE: 201312
